FAERS Safety Report 13462042 (Version 1)
Quarter: 2017Q2

REPORT INFORMATION
  Report Type: Spontaneous
  Country: US (occurrence: US)
  Receive Date: 20170420
  Receipt Date: 20170420
  Transmission Date: 20170830
  Serious: Yes (Disabling)
  Sender: FDA-Public Use
  Company Number: None

PATIENT
  Age: 33 Year
  Sex: Male
  Weight: 81 kg

DRUGS (2)
  1. NAPROXEN. [Concomitant]
     Active Substance: NAPROXEN
  2. DULOXETINE. [Suspect]
     Active Substance: DULOXETINE
     Indication: BACK PAIN
     Dosage: ?          QUANTITY:1 CAPSULE(S);?
     Route: 048
     Dates: start: 20150501, end: 20170401

REACTIONS (6)
  - Paraesthesia [None]
  - Insomnia [None]
  - Anxiety [None]
  - Mood swings [None]
  - Decreased appetite [None]
  - Withdrawal syndrome [None]

NARRATIVE: CASE EVENT DATE: 20161001
